FAERS Safety Report 8046758 (Version 4)
Quarter: 2014Q1

REPORT INFORMATION
  Report Type: Spontaneous
  Country: US (occurrence: US)
  Receive Date: 20110721
  Receipt Date: 20140114
  Transmission Date: 20141002
  Serious: Yes (Hospitalization, Other)
  Sender: FDA-Public Use
  Company Number: US-BAYER-2011-062067

PATIENT
  Age: 20 Year
  Sex: Female
  Weight: 92 kg

DRUGS (4)
  1. YASMIN [Suspect]
     Indication: PREMENSTRUAL SYNDROME
     Dosage: UNK
     Dates: start: 2002, end: 200906
  2. MIRENA [Concomitant]
  3. IBUPROFEN [Concomitant]
     Dosage: 200 MG, UNK
     Route: 048
  4. PRO-AIR [Concomitant]
     Indication: DYSPNOEA
     Dosage: UNK
     Route: 055

REACTIONS (7)
  - Cholelithiasis [None]
  - Bile duct stone [None]
  - Cholecystitis chronic [None]
  - Injury [None]
  - Pain [None]
  - Emotional distress [None]
  - Anxiety [None]
